FAERS Safety Report 9172659 (Version 1)
Quarter: 2012Q4

REPORT INFORMATION
  Report Type: Report from Study
  Country: US (occurrence: US)
  Receive Date: 20120911
  Receipt Date: 20120911
  Transmission Date: 20130627
  Serious: Yes (Other)
  Sender: FDA-Public Use
  Company Number: US-US-EMD SERONO, INC.-7159361

PATIENT
  Sex: Female

DRUGS (2)
  1. REBIF [Suspect]
     Indication: PRODUCT USED FOR UNKNOWN INDICATION
     Route: 058
     Dates: start: 20060903, end: 2012
  2. REBIF [Suspect]
     Route: 058
     Dates: start: 2012, end: 2012

REACTIONS (2)
  - Cholelithiasis [Unknown]
  - Hepatic enzyme increased [Recovered/Resolved]
